FAERS Safety Report 6767865-X (Version None)
Quarter: 2010Q2

REPORT INFORMATION
  Report Type: 
  Country: None (occurrence: None)
  Receive Date: 20100614
  Receipt Date: 20100607
  Transmission Date: 20101027
  Serious: Yes (Hospitalization, Other)
  Sender: FDA-Public Use
  Company Number: CA-ASTRAZENECA-2010SE26644

PATIENT
  Age: 62 Year
  Sex: Male
  Weight: 84.8 kg

DRUGS (28)
  1. CRESTOR [Suspect]
     Route: 048
  2. ALDACTONE [Concomitant]
     Route: 048
  3. ASPIRIN [Concomitant]
  4. BACTROBAN [Concomitant]
     Route: 061
  5. CALCIUM CARBONATE [Concomitant]
     Route: 048
  6. CLOXACILLIN [Concomitant]
     Route: 048
  7. COLACE [Concomitant]
     Route: 048
  8. DULCOLAX ECT [Concomitant]
  9. FERROUS SULFATE TAB [Concomitant]
     Route: 048
  10. FOSAMAX [Concomitant]
     Route: 048
  11. GOLYTELY GILAVAGE SOLUTION [Concomitant]
  12. HEPARIN SODIUM [Concomitant]
     Route: 042
  13. INFUFER [Concomitant]
     Route: 030
  14. NPH INSULIN [Concomitant]
  15. K-DUR [Concomitant]
  16. LACTULOSE [Concomitant]
     Route: 048
  17. LASIX [Concomitant]
     Route: 042
  18. METOPROLOL TARTRATE [Concomitant]
  19. NITROGLYCERIN [Concomitant]
     Route: 060
  20. NORVASC [Concomitant]
  21. NOVORAPID [Concomitant]
  22. OXAZEPAM [Concomitant]
  23. PANTOPRAZOLE [Concomitant]
  24. PLAVIX [Concomitant]
  25. POTASSIUM CHLORIDE [Concomitant]
     Route: 048
  26. RAMIPRIL [Concomitant]
  27. VITAMIN D [Concomitant]
     Route: 048
  28. VITAMIN K TAB [Concomitant]
     Route: 048

REACTIONS (12)
  - ASPARTATE AMINOTRANSFERASE INCREASED [None]
  - BLOOD CHROMIUM INCREASED [None]
  - BLOOD CREATINE PHOSPHOKINASE INCREASED [None]
  - BLOOD LACTATE DEHYDROGENASE INCREASED [None]
  - C-REACTIVE PROTEIN INCREASED [None]
  - HAPTOGLOBIN INCREASED [None]
  - MOBILITY DECREASED [None]
  - MUSCULAR WEAKNESS [None]
  - POLYMYOSITIS [None]
  - RED BLOOD CELL SEDIMENTATION RATE INCREASED [None]
  - RHABDOMYOLYSIS [None]
  - SENSATION OF HEAVINESS [None]
